FAERS Safety Report 21195679 (Version 1)
Quarter: 2022Q3

REPORT INFORMATION
  Report Type: Spontaneous
  Country: US (occurrence: None)
  Receive Date: 20220810
  Receipt Date: 20220810
  Transmission Date: 20221026
  Serious: Yes (Disabling)
  Sender: FDA-Public Use
  Company Number: None

PATIENT
  Age: 31 Year
  Sex: Female
  Weight: 54 kg

DRUGS (1)
  1. GADOBUTROL [Suspect]
     Active Substance: GADOBUTROL
     Indication: Magnetic resonance imaging head
     Dates: start: 20220413

REACTIONS (14)
  - Weight decreased [None]
  - Rash [None]
  - Muscle twitching [None]
  - Skin burning sensation [None]
  - Bone pain [None]
  - Arthralgia [None]
  - Joint dislocation [None]
  - Skin wrinkling [None]
  - Anxiety [None]
  - Visual impairment [None]
  - Sinus disorder [None]
  - Tooth disorder [None]
  - Dysgeusia [None]
  - Contrast media reaction [None]

NARRATIVE: CASE EVENT DATE: 20220413
